FAERS Safety Report 5152011-9 (Version None)
Quarter: 2006Q4

REPORT INFORMATION
  Report Type: 
  Country: None (occurrence: None)
  Receive Date: 20061116
  Receipt Date: 20061107
  Transmission Date: 20070319
  Serious: Yes (Other)
  Sender: FDA-Public Use
  Company Number: US-JNJFOC-20061101689

PATIENT
  Sex: Female
  Weight: 65.77 kg

DRUGS (11)
  1. EXTRA STRENGTH TYLENOL [Suspect]
  2. EXTRA STRENGTH TYLENOL [Suspect]
     Indication: ARTHRITIS
  3. ZETIA [Concomitant]
     Indication: BLOOD CHOLESTEROL INCREASED
  4. CARDIAZEM [Concomitant]
     Indication: HYPERTENSION
  5. VALSARTAN [Concomitant]
     Indication: HYPERTENSION
  6. HYDROCHLOROTHIAZIDE [Concomitant]
     Indication: HYPERTENSION
  7. ACETYLSALICYLIC ACID SRT [Concomitant]
     Indication: CEREBROVASCULAR ACCIDENT PROPHYLAXIS
  8. PLAVIX [Concomitant]
     Indication: CEREBROVASCULAR ACCIDENT PROPHYLAXIS
  9. PRILOSEC [Concomitant]
     Indication: GASTROOESOPHAGEAL REFLUX DISEASE
  10. VITAMINS [Concomitant]
     Indication: ROUTINE HEALTH MAINTENANCE
  11. CALCIUM [Concomitant]
     Indication: ROUTINE HEALTH MAINTENANCE

REACTIONS (3)
  - DYSPNOEA [None]
  - HYPOTENSION [None]
  - RASH [None]
